FAERS Safety Report 5489591-X (Version None)
Quarter: 2007Q4

REPORT INFORMATION
  Report Type: 
  Country: None (occurrence: None)
  Receive Date: 20071018
  Receipt Date: 20071011
  Transmission Date: 20080405
  Serious: Yes (Other)
  Sender: FDA-Public Use
  Company Number: GB-MERCK-0710USA03275

PATIENT
  Age: 51 Year
  Sex: Female

DRUGS (1)
  1. PRINIVIL [Suspect]
     Route: 065

REACTIONS (1)
  - URINARY RETENTION [None]
